FAERS Safety Report 15337964 (Version 1)
Quarter: 2018Q4

REPORT INFORMATION
  Report Type: Spontaneous
  Country: CH (occurrence: CH)
  Receive Date: 20180831
  Receipt Date: 20180831
  Transmission Date: 20190204
  Serious: Yes (Other)
  Sender: FDA-Public Use
  Company Number: CH-TEVA-2018-CH-949146

PATIENT
  Age: 51 Year
  Sex: Female
  Weight: 129 kg

DRUGS (4)
  1. AMLODIPINE-VALSARTAN-HCT MEPHA [Suspect]
     Active Substance: AMLODIPINE\VALSARTAN
     Indication: HYPERTENSION
     Dosage: 1 DOSAGE FORMS DAILY; AMLODIPIN-VALSARTAN-HCT-MEPHA 10/160/25 MG 1-0-0
     Route: 048
     Dates: start: 20180717, end: 20180815
  2. ASS CARDIO [Concomitant]
     Active Substance: ASPIRIN
     Dosage: 100 MILLIGRAM DAILY;
     Route: 065
  3. CARVEDILOL SANDOZ [Concomitant]
     Active Substance: CARVEDILOL
     Dosage: 50 MILLIGRAM DAILY;
     Route: 065
  4. KCL RETARD ZYMA [Concomitant]
     Active Substance: POTASSIUM CHLORIDE
     Dosage: KCL DELAYED RELEASE, 2-0-1
     Route: 065

REACTIONS (6)
  - Product impurity [Recovered/Resolved]
  - Fatigue [Recovered/Resolved]
  - Dyspnoea exertional [Recovered/Resolved]
  - Drug ineffective [Recovered/Resolved]
  - Headache [Recovered/Resolved]
  - Oedema peripheral [Recovered/Resolved]

NARRATIVE: CASE EVENT DATE: 20180717
